FAERS Safety Report 8430056-0 (Version None)
Quarter: 2012Q2

REPORT INFORMATION
  Report Type: 
  Country: None (occurrence: None)
  Receive Date: 20120612
  Receipt Date: 20120529
  Transmission Date: 20120825
  Serious: Yes (Death, Hospitalization, Other)
  Sender: FDA-Public Use
  Company Number: US-MYLANLABS-2009AC000009

PATIENT
  Age: 49 Year
  Sex: Male
  Weight: 106.6 kg

DRUGS (21)
  1. OXYCODONE HCL [Concomitant]
  2. ZESTORETIC [Concomitant]
  3. SIMVASTATIN [Concomitant]
  4. RAMIPRIL [Concomitant]
  5. ZYBAN [Concomitant]
  6. NITROSTAT [Concomitant]
  7. PLAVIX [Concomitant]
  8. HYDROCODONE [Concomitant]
  9. ALTACE [Concomitant]
  10. NIFEDIPINE [Concomitant]
  11. VALTREX [Concomitant]
  12. CIALIS [Concomitant]
  13. DIAZEPAM [Concomitant]
  14. ATENOLOL [Concomitant]
  15. CLINDAMYCIN [Concomitant]
  16. VIAGRA [Concomitant]
  17. DIGOXIN [Suspect]
     Indication: ARRHYTHMIA
     Route: 048
     Dates: start: 20010723, end: 20080507
  18. AMBIEN [Concomitant]
  19. FUROSEMIDE [Concomitant]
  20. LIPITOR [Concomitant]
  21. ZOCOR [Concomitant]

REACTIONS (13)
  - ECONOMIC PROBLEM [None]
  - HYPERTENSION [None]
  - ARTERIAL OCCLUSIVE DISEASE [None]
  - NICOTINE DEPENDENCE [None]
  - HOSPITALISATION [None]
  - DEATH [None]
  - ILL-DEFINED DISORDER [None]
  - ARTERIOSCLEROSIS CORONARY ARTERY [None]
  - CARDIAC DISORDER [None]
  - CARDIAC OPERATION [None]
  - INJURY [None]
  - HYPERLIPIDAEMIA [None]
  - ANGIOPLASTY [None]
